FAERS Safety Report 4909407-7 (Version None)
Quarter: 2006Q1

REPORT INFORMATION
  Report Type: 
  Country: None (occurrence: None)
  Receive Date: 20060213
  Receipt Date: 20060203
  Transmission Date: 20060701
  Serious: Yes (Other)
  Sender: FDA-Public Use
  Company Number: PHNR2006AU00520

PATIENT
  Age: 28 Year
  Sex: Male

DRUGS (1)
  1. RITALIN [Suspect]
     Indication: ATTENTION DEFICIT/HYPERACTIVITY DISORDER
     Dosage: 10 MG, TID
     Route: 048
     Dates: start: 20060131

REACTIONS (4)
  - ADVERSE EVENT [None]
  - HALLUCINATION [None]
  - IRRITABILITY [None]
  - SLEEP DISORDER [None]
